FAERS Safety Report 6525056-1 (Version None)
Quarter: 2009Q4

REPORT INFORMATION
  Report Type: 
  Country: None (occurrence: None)
  Receive Date: 20091224
  Receipt Date: 20091210
  Transmission Date: 20100525
  Serious: Yes (Other)
  Sender: FDA-Public Use
  Company Number: 453335

PATIENT
  Age: 49 Year
  Sex: Female

DRUGS (1)
  1. OXALIPLATIN [Suspect]
     Indication: METASTASES TO LIVER
     Dosage: 132.5 MG
     Dates: start: 20091212, end: 20091212

REACTIONS (6)
  - ANXIETY [None]
  - DRY THROAT [None]
  - ERYTHEMA [None]
  - PRURITUS [None]
  - SENSORY DISTURBANCE [None]
  - THROAT IRRITATION [None]
